FAERS Safety Report 5761835-6 (Version None)
Quarter: 2008Q2

REPORT INFORMATION
  Report Type: 
  Country: None (occurrence: None)
  Receive Date: 20080602
  Receipt Date: 20080519
  Transmission Date: 20081010
  Serious: Yes (Other)
  Sender: FDA-Public Use
  Company Number: 163-21880-07061645

PATIENT
  Age: 58 Year
  Sex: Male
  Weight: 83.4 kg

DRUGS (4)
  1. REVLIMID [Suspect]
     Indication: MULTIPLE MYELOMA
     Dosage: 5 MG, 1 IN 1 D, ORAL
     Route: 048
     Dates: start: 20070207, end: 20070529
  2. PROCRIT [Concomitant]
  3. NEUPOGEN [Concomitant]
  4. ATIVAN [Concomitant]

REACTIONS (7)
  - ARTERIAL OCCLUSIVE DISEASE [None]
  - DISEASE PROGRESSION [None]
  - HAEMATOCRIT DECREASED [None]
  - LIMB INJURY [None]
  - PANCYTOPENIA [None]
  - RENAL FAILURE [None]
  - SKIN DISCOLOURATION [None]
